FAERS Safety Report 6553245-9 (Version None)
Quarter: 2010Q1

REPORT INFORMATION
  Report Type: 
  Country: None (occurrence: None)
  Receive Date: 20100127
  Receipt Date: 20090422
  Transmission Date: 20100710
  Serious: No
  Sender: FDA-Public Use
  Company Number: A0780152A

PATIENT
  Sex: Male

DRUGS (13)
  1. IMITREX [Suspect]
     Indication: MIGRAINE
     Dosage: 1INJ TWICE PER DAY
     Route: 058
  2. TYLENOL [Concomitant]
  3. AMITRIPTYLINE HCL [Concomitant]
  4. FIORICET [Concomitant]
  5. FLEXERIL [Concomitant]
  6. GABAPENTIN [Concomitant]
  7. IBUPROFEN [Concomitant]
  8. MIRTAZAPINE [Concomitant]
  9. VALPROIC ACID [Concomitant]
  10. VERAPAMIL [Concomitant]
  11. LISINOPRIL [Concomitant]
  12. RANITIDINE [Concomitant]
  13. OMEPRAZOLE [Concomitant]

REACTIONS (1)
  - MEDICATION ERROR [None]
